FAERS Safety Report 6332346-4 (Version None)
Quarter: 2009Q3

REPORT INFORMATION
  Report Type: 
  Country: None (occurrence: None)
  Receive Date: 20090827
  Receipt Date: 20090827
  Transmission Date: 20100115
  Serious: Yes (Other)
  Sender: FDA-Public Use
  Company Number: None

PATIENT
  Sex: Female
  Weight: 98.8842 kg

DRUGS (1)
  1. WELLBUTRIN XL [Suspect]
     Indication: MAJOR DEPRESSION
     Dosage: 150MG PO QAM 300MG PO QAM DURATION 1 1/2 WKS 2006/7
     Route: 048

REACTIONS (2)
  - NAUSEA [None]
  - PRODUCT SUBSTITUTION ISSUE [None]
